FAERS Safety Report 11145756 (Version 1)
Quarter: 2015Q2

REPORT INFORMATION
  Report Type: Spontaneous
  Country: US (occurrence: None)
  Receive Date: 20150527
  Receipt Date: 20150527
  Transmission Date: 20150821
  Serious: Yes (Hospitalization)
  Sender: FDA-Public Use
  Company Number: None

PATIENT
  Age: 72 Year
  Sex: Male
  Weight: 88.6 kg

DRUGS (1)
  1. PHENYTOIN. [Suspect]
     Active Substance: PHENYTOIN
     Indication: SEIZURE
     Dosage: AT BEDTIME
     Route: 048
     Dates: start: 20070404, end: 20150302

REACTIONS (6)
  - Toxicity to various agents [None]
  - Extra dose administered [None]
  - Ataxia [None]
  - Dizziness [None]
  - Hepatic lesion [None]
  - Paraesthesia [None]

NARRATIVE: CASE EVENT DATE: 20150302
